FAERS Safety Report 18068935 (Version 2)
Quarter: 2020Q4

REPORT INFORMATION
  Report Type: Report from Study
  Country: ES (occurrence: ES)
  Receive Date: 20200724
  Receipt Date: 20201019
  Transmission Date: 20210113
  Serious: Yes (Other)
  Sender: FDA-Public Use
  Company Number: ES-TAKEDA-2020TUS031910

PATIENT
  Age: 79 Year
  Sex: Female

DRUGS (22)
  1. BORTEZOMIB. [Suspect]
     Active Substance: BORTEZOMIB
     Dosage: 2.21 MILLIGRAM, 1/WEEK
     Route: 058
     Dates: start: 20200521, end: 20200611
  2. DEXAMETHASONE. [Suspect]
     Active Substance: DEXAMETHASONE
     Indication: PLASMA CELL MYELOMA
     Dosage: 80 MILLIGRAM, 1/WEEK
     Route: 048
     Dates: start: 20191220, end: 20200121
  3. DEXAMETHASONE. [Suspect]
     Active Substance: DEXAMETHASONE
     Dosage: 40 MILLIGRAM, 1/WEEK
     Route: 048
     Dates: start: 20200227, end: 20200310
  4. REVLIMID [Suspect]
     Active Substance: LENALIDOMIDE
     Dosage: 5 MILLIGRAM
     Route: 048
     Dates: start: 20200415, end: 20200611
  5. OMEPRAZOLE. [Concomitant]
     Active Substance: OMEPRAZOLE
     Indication: PRODUCT USED FOR UNKNOWN INDICATION
     Dosage: UNK
     Route: 065
  6. BORTEZOMIB. [Suspect]
     Active Substance: BORTEZOMIB
     Indication: PLASMA CELL MYELOMA
     Dosage: 3.36 MILLIGRAM, 1/WEEK
     Route: 058
     Dates: start: 20191220, end: 20200120
  7. BORTEZOMIB. [Suspect]
     Active Substance: BORTEZOMIB
     Dosage: 4.36 MILLIGRAM, 1/WEEK
     Route: 058
     Dates: start: 20200207, end: 20200309
  8. REVLIMID [Suspect]
     Active Substance: LENALIDOMIDE
     Dosage: 5 MILLIGRAM
     Route: 048
     Dates: start: 20200320, end: 20200402
  9. NATECAL [Concomitant]
     Active Substance: CALCIUM CARBONATE\CHOLECALCIFEROL
     Indication: PRODUCT USED FOR UNKNOWN INDICATION
     Dosage: UNK
     Route: 065
  10. ACICLOVIR [Concomitant]
     Active Substance: ACYCLOVIR
     Indication: PRODUCT USED FOR UNKNOWN INDICATION
     Dosage: UNK
     Route: 065
  11. DEXAMETHASONE. [Suspect]
     Active Substance: DEXAMETHASONE
     Dosage: 20 MILLIGRAM, 1/WEEK
     Route: 048
     Dates: start: 20200415, end: 20200612
  12. ONDANSETRON [Concomitant]
     Active Substance: ONDANSETRON
     Indication: PRODUCT USED FOR UNKNOWN INDICATION
     Dosage: UNK
     Route: 065
  13. REVLIMID [Suspect]
     Active Substance: LENALIDOMIDE
     Indication: PLASMA CELL MYELOMA
     Dosage: 10 MILLIGRAM
     Route: 048
     Dates: start: 20191220, end: 20200123
  14. ADIRO [Concomitant]
     Active Substance: ASPIRIN
     Dosage: UNK
     Route: 065
  15. DEXAMETHASONE. [Suspect]
     Active Substance: DEXAMETHASONE
     Dosage: 40 MILLIGRAM, 1/WEEK
     Route: 048
     Dates: start: 20200320, end: 20200331
  16. ARANESP [Concomitant]
     Active Substance: DARBEPOETIN ALFA
     Dosage: UNK
     Route: 065
  17. BORTEZOMIB. [Suspect]
     Active Substance: BORTEZOMIB
     Dosage: 1.68 MILLIGRAM, 1/WEEK
     Route: 058
     Dates: start: 20200415, end: 20200506
  18. HIDROXIL B12 B6 B1 [Concomitant]
     Active Substance: HYDROXOCOBALAMIN\PYRIDOXINE HYDROCHLORIDE\THIAMINE HYDROCHLORIDE
     Indication: PRODUCT USED FOR UNKNOWN INDICATION
     Dosage: UNK
     Route: 065
  19. DEXAMETHASONE. [Suspect]
     Active Substance: DEXAMETHASONE
     Dosage: 10 MILLIGRAM
     Route: 048
     Dates: start: 20200214, end: 20200217
  20. SEPTRIN [Concomitant]
     Active Substance: SULFAMETHOXAZOLE\TRIMETHOPRIM
     Indication: PRODUCT USED FOR UNKNOWN INDICATION
     Dosage: UNK
     Route: 065
  21. BORTEZOMIB. [Suspect]
     Active Substance: BORTEZOMIB
     Dosage: 3.36 MILLIGRAM, 1/WEEK
     Route: 058
     Dates: start: 20200320, end: 20200330
  22. REVLIMID [Suspect]
     Active Substance: LENALIDOMIDE
     Dosage: 5 MILLIGRAM
     Route: 048
     Dates: start: 20200227, end: 20200311

REACTIONS (1)
  - Toxic skin eruption [Recovered/Resolved]

NARRATIVE: CASE EVENT DATE: 20200407
